FAERS Safety Report 20964073 (Version 2)
Quarter: 2022Q3

REPORT INFORMATION
  Report Type: Spontaneous
  Country: BR (occurrence: BR)
  Receive Date: 20220615
  Receipt Date: 20220920
  Transmission Date: 20221027
  Serious: Yes (Other)
  Sender: FDA-Public Use
  Company Number: BR-SCALL-2022-BR-000049

PATIENT
  Sex: Male

DRUGS (1)
  1. DUTASTERIDE\TAMSULOSIN HYDROCHLORIDE [Suspect]
     Active Substance: DUTASTERIDE\TAMSULOSIN HYDROCHLORIDE
     Indication: Benign prostatic hyperplasia
     Dosage: 0.5MG
     Route: 065
     Dates: end: 202109

REACTIONS (12)
  - Blindness [Unknown]
  - Condition aggravated [Unknown]
  - Depressed mood [Unknown]
  - Haematospermia [Unknown]
  - Libido decreased [Unknown]
  - Deafness [Unknown]
  - Cataract [Unknown]
  - Urinary retention [Unknown]
  - Dizziness [Unknown]
  - Balance disorder [Unknown]
  - Dysstasia [Unknown]
  - Labyrinthitis [Unknown]

NARRATIVE: CASE EVENT DATE: 20210101
